FAERS Safety Report 17016491 (Version 1)
Quarter: 2019Q4

REPORT INFORMATION
  Report Type: Spontaneous
  Country: US (occurrence: US)
  Receive Date: 20191109
  Receipt Date: 20191109
  Transmission Date: 20200122
  Serious: Yes (Disabling)
  Sender: FDA-Public Use
  Company Number: None

PATIENT
  Age: 40 Year
  Sex: Female
  Weight: 58.5 kg

DRUGS (14)
  1. PREGNENOLONE [Concomitant]
     Active Substance: PREGNENOLONE
  2. VITAMIN D3 [Concomitant]
     Active Substance: CHOLECALCIFEROL
  3. SELENIUM [Concomitant]
     Active Substance: SELENIUM
  4. L-LYSINE [Concomitant]
     Active Substance: LYSINE
  5. SAM-E [Concomitant]
     Active Substance: ADEMETIONINE
  6. CELECOXIB. [Concomitant]
     Active Substance: CELECOXIB
  7. IP-6 [Concomitant]
  8. K2 [Concomitant]
     Active Substance: JWH-018
  9. MAGNESIUM MALATE. [Concomitant]
     Active Substance: MAGNESIUM MALATE
  10. LUPRON [Suspect]
     Active Substance: LEUPROLIDE ACETATE
     Indication: OOCYTE HARVEST
     Dosage: ?          QUANTITY:1 INJECTION(S);OTHER FREQUENCY:36HR PRIOR EGG RET;?
     Route: 030
     Dates: start: 20180104, end: 20180104
  11. VALACYCLOVIR [Concomitant]
     Active Substance: VALACYCLOVIR HYDROCHLORIDE
  12. DHEA [Concomitant]
     Active Substance: PRASTERONE
  13. RHODIOLA [Concomitant]
     Active Substance: HERBALS
  14. UBIQUINOL [Concomitant]
     Active Substance: UBIQUINOL

REACTIONS (14)
  - Fatigue [None]
  - Hormone level abnormal [None]
  - Feeling abnormal [None]
  - Loss of personal independence in daily activities [None]
  - Ophthalmic herpes simplex [None]
  - Hypothalamic pituitary adrenal axis suppression [None]
  - Bone density decreased [None]
  - Major depression [None]
  - Vitamin D decreased [None]
  - Condition aggravated [None]
  - Menstruation irregular [None]
  - Premature menopause [None]
  - Somnolence [None]
  - Hypothyroidism [None]

NARRATIVE: CASE EVENT DATE: 20180106
